FAERS Safety Report 17800518 (Version 2)
Quarter: 2020Q2

REPORT INFORMATION
  Report Type: Report from Study
  Country: JP (occurrence: JP)
  Receive Date: 20200518
  Receipt Date: 20200526
  Transmission Date: 20200714
  Serious: Yes (Death, Other)
  Sender: FDA-Public Use
  Company Number: JP-ACTELION-A-NJ2020-205378

PATIENT
  Age: 65 Year
  Sex: Female

DRUGS (10)
  1. BOSENTAN MONOHYDRATE [Concomitant]
     Active Substance: BOSENTAN
  2. REVATIO [Concomitant]
     Active Substance: SILDENAFIL CITRATE
  3. RABEPRAZOLE SODIUM. [Concomitant]
     Active Substance: RABEPRAZOLE SODIUM
  4. DIGOXIN. [Concomitant]
     Active Substance: DIGOXIN
  5. ONEALFA [Concomitant]
     Active Substance: ALFACALCIDOL
  6. VENTAVIS [Suspect]
     Active Substance: ILOPROST
     Indication: PULMONARY ARTERIAL HYPERTENSION
     Dosage: 5 MCG, 6 TIMES A DAY
     Route: 055
     Dates: start: 20170325, end: 20171126
  7. AZULFIDINE EN-TABS [Concomitant]
     Active Substance: SULFASALAZINE
  8. OLMETEC [Concomitant]
     Active Substance: OLMESARTAN MEDOXOMIL
  9. BISOPROLOL FUMARATE. [Concomitant]
     Active Substance: BISOPROLOL FUMARATE
  10. ADALAT [Concomitant]
     Active Substance: NIFEDIPINE
     Dosage: 10 MG

REACTIONS (5)
  - Pulmonary hypertension [Unknown]
  - Influenza [Unknown]
  - Sepsis [Fatal]
  - Gastric cancer [Fatal]
  - Respiratory disorder [Unknown]

NARRATIVE: CASE EVENT DATE: 20171202
